FAERS Safety Report 11822175 (Version 4)
Quarter: 2017Q4

REPORT INFORMATION
  Report Type: Spontaneous
  Country: US (occurrence: US)
  Receive Date: 20151210
  Receipt Date: 20171226
  Transmission Date: 20180320
  Serious: Yes (Other)
  Sender: FDA-Public Use
  Company Number: US-JNJFOC-20150807233

PATIENT
  Age: 77 Year
  Sex: Male

DRUGS (59)
  1. IMBRUVICA [Suspect]
     Active Substance: IBRUTINIB
     Indication: CHRONIC LYMPHOCYTIC LEUKAEMIA
     Route: 048
     Dates: start: 20161216
  2. ZESTRIL [Concomitant]
     Active Substance: LISINOPRIL
     Dates: start: 20140807, end: 20141014
  3. BACTRIM DS [Concomitant]
     Active Substance: SULFAMETHOXAZOLE\TRIMETHOPRIM
     Dosage: 800-160 MG PER TABLET
  4. ADVIL [Concomitant]
     Active Substance: IBUPROFEN
     Dates: start: 20170323
  5. IMBRUVICA [Suspect]
     Active Substance: IBRUTINIB
     Indication: CHRONIC LYMPHOCYTIC LEUKAEMIA
     Route: 048
     Dates: start: 20160408
  6. LISINOPRIL. [Concomitant]
     Active Substance: LISINOPRIL
     Dates: start: 20170817
  7. LISINOPRIL. [Concomitant]
     Active Substance: LISINOPRIL
     Dates: start: 20150921, end: 20151217
  8. LISINOPRIL. [Concomitant]
     Active Substance: LISINOPRIL
     Dates: end: 20150720
  9. LISINOPRIL. [Concomitant]
     Active Substance: LISINOPRIL
     Dates: start: 20140807, end: 20141014
  10. GEMBAR [Concomitant]
  11. ZESTRIL [Concomitant]
     Active Substance: LISINOPRIL
     Dates: start: 20170817
  12. IMBRUVICA [Suspect]
     Active Substance: IBRUTINIB
     Indication: CHRONIC LYMPHOCYTIC LEUKAEMIA
     Route: 048
     Dates: start: 20141204, end: 20141204
  13. IMBRUVICA [Suspect]
     Active Substance: IBRUTINIB
     Indication: THERAPY NAIVE
     Route: 048
     Dates: start: 20150413, end: 20160312
  14. LISINOPRIL. [Concomitant]
     Active Substance: LISINOPRIL
     Dates: start: 20130722, end: 20140411
  15. ADVAIR HFA [Concomitant]
     Active Substance: FLUTICASONE PROPIONATE\SALMETEROL XINAFOATE
     Dosage: 250-50 MCG
  16. ASPIRIN. [Concomitant]
     Active Substance: ASPIRIN
  17. ZESTRIL [Concomitant]
     Active Substance: LISINOPRIL
     Dates: start: 20150318, end: 20150921
  18. DOXYCYCLINE. [Concomitant]
     Active Substance: DOXYCYCLINE
     Dates: start: 20170707, end: 20170711
  19. TAMSULOSIN HYDROCHLORIDE. [Concomitant]
     Active Substance: TAMSULOSIN HYDROCHLORIDE
     Dates: start: 20170323
  20. IMBRUVICA [Suspect]
     Active Substance: IBRUTINIB
     Indication: THERAPY NAIVE
     Route: 048
     Dates: start: 20150109, end: 2015
  21. IMBRUVICA [Suspect]
     Active Substance: IBRUTINIB
     Indication: THERAPY NAIVE
     Route: 048
     Dates: start: 20160408
  22. LISINOPRIL. [Concomitant]
     Active Substance: LISINOPRIL
     Dates: start: 20170703, end: 20170817
  23. LISINOPRIL. [Concomitant]
     Active Substance: LISINOPRIL
     Dates: start: 20160919, end: 20161020
  24. LISINOPRIL. [Concomitant]
     Active Substance: LISINOPRIL
     Dates: start: 20160601, end: 20160607
  25. LISINOPRIL. [Concomitant]
     Active Substance: LISINOPRIL
  26. LISINOPRIL. [Concomitant]
     Active Substance: LISINOPRIL
     Dates: start: 20151218, end: 20160314
  27. LISINOPRIL. [Concomitant]
     Active Substance: LISINOPRIL
     Dates: start: 20141007, end: 20150116
  28. PARAPLATINE [Concomitant]
  29. ZESTRIL [Concomitant]
     Active Substance: LISINOPRIL
     Dates: start: 20150921, end: 20160607
  30. COLACE [Concomitant]
     Active Substance: DOCUSATE SODIUM
  31. LISINOPRIL. [Concomitant]
     Active Substance: LISINOPRIL
     Dates: start: 20170217, end: 20170703
  32. LISINOPRIL. [Concomitant]
     Active Substance: LISINOPRIL
     Dates: start: 20161121, end: 20170217
  33. LISINOPRIL. [Concomitant]
     Active Substance: LISINOPRIL
     Dates: start: 20161020, end: 20161121
  34. LISINOPRIL. [Concomitant]
     Active Substance: LISINOPRIL
     Dates: start: 20140707, end: 20140807
  35. VITAMIN C [Concomitant]
     Active Substance: ASCORBIC ACID
  36. VITAMIN D [Concomitant]
     Active Substance: CHOLECALCIFEROL
  37. LEVAQUIN [Concomitant]
     Active Substance: LEVOFLOXACIN
  38. NORCO [Concomitant]
     Active Substance: ACETAMINOPHEN\HYDROCODONE BITARTRATE
     Dosage: 5-325 MG
  39. MACROBID [Concomitant]
     Active Substance: NITROFURANTOIN\NITROFURANTOIN MONOHYDRATE
  40. IMBRUVICA [Suspect]
     Active Substance: IBRUTINIB
     Indication: THERAPY NAIVE
     Route: 048
     Dates: start: 20161216
  41. IMBRUVICA [Suspect]
     Active Substance: IBRUTINIB
     Indication: CHRONIC LYMPHOCYTIC LEUKAEMIA
     Route: 048
     Dates: start: 20141210, end: 20150109
  42. LISINOPRIL. [Concomitant]
     Active Substance: LISINOPRIL
     Dates: end: 20150217
  43. ZESTRIL [Concomitant]
     Active Substance: LISINOPRIL
  44. DIFLUCAN [Concomitant]
     Active Substance: FLUCONAZOLE
     Dates: start: 20160506, end: 20170716
  45. CEFDINIR. [Concomitant]
     Active Substance: CEFDINIR
     Dates: start: 20170324, end: 20170403
  46. IMBRUVICA [Suspect]
     Active Substance: IBRUTINIB
     Indication: THERAPY NAIVE
     Route: 048
     Dates: start: 20141204, end: 20141204
  47. LISINOPRIL. [Concomitant]
     Active Substance: LISINOPRIL
     Dates: start: 20150318, end: 20150921
  48. LISINOPRIL. [Concomitant]
     Active Substance: LISINOPRIL
     Dates: start: 20140411, end: 20140411
  49. GLUCOSAMINE [Concomitant]
     Active Substance: GLUCOSAMINE
  50. ZESTRIL [Concomitant]
     Active Substance: LISINOPRIL
     Dates: end: 20150720
  51. CIPROFLOXACIN. [Concomitant]
     Active Substance: CIPROFLOXACIN
     Dates: start: 20170601, end: 20170615
  52. IMBRUVICA [Suspect]
     Active Substance: IBRUTINIB
     Indication: CHRONIC LYMPHOCYTIC LEUKAEMIA
     Route: 048
     Dates: start: 20150109, end: 2015
  53. IMBRUVICA [Suspect]
     Active Substance: IBRUTINIB
     Indication: THERAPY NAIVE
     Route: 048
     Dates: start: 20141210, end: 20150109
  54. IMBRUVICA [Suspect]
     Active Substance: IBRUTINIB
     Indication: CHRONIC LYMPHOCYTIC LEUKAEMIA
     Route: 048
     Dates: start: 20150413, end: 20160312
  55. LISINOPRIL. [Concomitant]
     Active Substance: LISINOPRIL
     Dates: start: 20140411, end: 20140707
  56. ZESTRIL [Concomitant]
     Active Substance: LISINOPRIL
     Dates: end: 20150217
  57. ZESTRIL [Concomitant]
     Active Substance: LISINOPRIL
     Dates: start: 20160919, end: 20170817
  58. DITROPAN [Concomitant]
     Active Substance: OXYBUTYNIN CHLORIDE
  59. SENOKOT [Concomitant]
     Active Substance: SENNOSIDES
     Dates: start: 20151001

REACTIONS (6)
  - Transitional cell carcinoma [Recovered/Resolved]
  - Aphasia [Recovered/Resolved]
  - Gait disturbance [Recovered/Resolved]
  - Constipation [Unknown]
  - Urethral disorder [Unknown]
  - Haematuria [Recovered/Resolved]

NARRATIVE: CASE EVENT DATE: 2015
